FAERS Safety Report 23363979 (Version 3)
Quarter: 2024Q1

REPORT INFORMATION
  Report Type: Spontaneous
  Country: US (occurrence: US)
  Receive Date: 20240104
  Receipt Date: 20240112
  Transmission Date: 20240409
  Serious: No
  Sender: FDA-Public Use
  Company Number: US-OPELLA-2023OHG020859

PATIENT

DRUGS (1)
  1. ICY HOT WITH LIDOCAINE NO-MESS [Suspect]
     Active Substance: LIDOCAINE\MENTHOL

REACTIONS (2)
  - No adverse event [Unknown]
  - Drug ineffective [Unknown]
